FAERS Safety Report 8055159-4 (Version None)
Quarter: 2012Q1

REPORT INFORMATION
  Report Type: 
  Country: None (occurrence: None)
  Receive Date: 20120119
  Receipt Date: 20120113
  Transmission Date: 20120608
  Serious: Yes (Death, Hospitalization)
  Sender: FDA-Public Use
  Company Number: US-CELGENEUS-163-21880-12011561

PATIENT
  Age: 73 Year
  Sex: Female

DRUGS (8)
  1. REVLIMID [Suspect]
     Indication: MULTIPLE MYELOMA
     Dosage: 5 MILLIGRAM
     Route: 048
     Dates: start: 20111220, end: 20120108
  2. PERCOCET [Concomitant]
     Route: 065
  3. ONDANSETRON [Concomitant]
     Route: 065
  4. PANTOPRAZOLE [Concomitant]
     Route: 065
  5. SEVELAMER [Concomitant]
     Route: 065
  6. MORPHINE [Concomitant]
     Route: 065
  7. REGLAN [Concomitant]
     Route: 065
  8. MIRALAX [Concomitant]
     Route: 065

REACTIONS (4)
  - CARDIAC FAILURE CONGESTIVE [None]
  - PNEUMONIA [None]
  - RENAL FAILURE CHRONIC [None]
  - MULTIPLE MYELOMA [None]
